FAERS Safety Report 5077579-2 (Version None)
Quarter: 2006Q3

REPORT INFORMATION
  Report Type: 
  Country: None (occurrence: None)
  Receive Date: 20060810
  Receipt Date: 20060411
  Transmission Date: 20061208
  Serious: No
  Sender: FDA-Public Use
  Company Number: US-GLAXOSMITHKLINE-A0601400A

PATIENT
  Age: 83 Year
  Sex: Female

DRUGS (4)
  1. PAROXETINE HCL [Suspect]
     Indication: DEPRESSION
     Dosage: 10MG PER DAY
     Route: 048
     Dates: start: 20060326
  2. PRINIVIL [Concomitant]
  3. ZOCOR [Concomitant]
  4. MINERAL OIL [Concomitant]

REACTIONS (2)
  - DEPRESSION [None]
  - DIZZINESS [None]
